FAERS Safety Report 10888905 (Version 1)
Quarter: 2015Q1

REPORT INFORMATION
  Report Type: Spontaneous
  Country: US (occurrence: US)
  Receive Date: 20150305
  Receipt Date: 20150305
  Transmission Date: 20150721
  Serious: No
  Sender: FDA-Public Use
  Company Number: US-ELI_LILLY_AND_COMPANY-US201404006613

PATIENT
  Sex: Female

DRUGS (3)
  1. HUMATROPE [Suspect]
     Active Substance: SOMATROPIN
     Dosage: 0.6 MG, UNKNOWN
     Route: 065
  2. HUMATROPE [Suspect]
     Active Substance: SOMATROPIN
     Indication: GROWTH HORMONE DEFICIENCY
     Dosage: 0.2 DAILY FOR 6 WEEKS
     Route: 065
     Dates: start: 2013
  3. HUMATROPE [Suspect]
     Active Substance: SOMATROPIN
     Dosage: 0.4 MG, UNKNOWN
     Route: 065

REACTIONS (12)
  - Memory impairment [Recovering/Resolving]
  - Migraine [Unknown]
  - Hormone level abnormal [Recovered/Resolved]
  - Drug dose omission [Recovered/Resolved]
  - Malaise [Unknown]
  - Fatigue [Unknown]
  - Drug dose omission [Unknown]
  - Feeling abnormal [Unknown]
  - Somnolence [Unknown]
  - Headache [Unknown]
  - Underdose [Unknown]
  - Hypoglycaemia [Unknown]

NARRATIVE: CASE EVENT DATE: 20150115
